FAERS Safety Report 9921671 (Version 1)
Quarter: 2014Q1

REPORT INFORMATION
  Report Type: Report from Study
  Country: BR (occurrence: BR)
  Receive Date: 20140225
  Receipt Date: 20140225
  Transmission Date: 20141002
  Serious: Yes (Other)
  Sender: FDA-Public Use
  Company Number: BR-ABBVIE-14P-020-1204214-00

PATIENT
  Sex: Male
  Weight: 94 kg

DRUGS (8)
  1. HUMIRA [Suspect]
     Indication: RHEUMATOID ARTHRITIS
     Route: 058
     Dates: start: 20140103
  2. LOSARTAN [Concomitant]
     Indication: HYPERTENSION
     Route: 048
  3. LOSARTAN [Concomitant]
     Indication: ANXIETY
     Route: 048
  4. BISOPROLOL FUMARATE [Concomitant]
     Indication: HYPERTENSION
     Route: 048
     Dates: start: 2009
  5. GLIFAGE [Concomitant]
     Indication: BLOOD GLUCOSE INCREASED
     Route: 048
     Dates: start: 2013
  6. SIMVASTATIN [Concomitant]
     Indication: BLOOD CHOLESTEROL ABNORMAL
     Route: 048
     Dates: start: 2013
  7. MIOFLEX [Concomitant]
     Indication: RELAXATION THERAPY
     Route: 048
     Dates: start: 20140214
  8. PREGABALIN [Concomitant]
     Indication: PAIN
     Route: 048
     Dates: start: 20140214

REACTIONS (2)
  - Spinal disorder [Not Recovered/Not Resolved]
  - Gait disturbance [Unknown]
